FAERS Safety Report 4586311-8 (Version None)
Quarter: 2005Q1

REPORT INFORMATION
  Report Type: 
  Country: None (occurrence: None)
  Receive Date: 20050217
  Receipt Date: 20041215
  Transmission Date: 20050727
  Serious: Yes (Other)
  Sender: FDA-Public Use
  Company Number: US-MERCK-0412USA01984

PATIENT
  Age: 81 Year
  Sex: Male

DRUGS (2)
  1. VIOXX [Suspect]
     Route: 048
     Dates: start: 20010522, end: 20030201
  2. VIOXX [Suspect]
     Route: 048

REACTIONS (4)
  - BLOOD URINE PRESENT [None]
  - CEREBROVASCULAR ACCIDENT [None]
  - HAEMORRHAGE URINARY TRACT [None]
  - TRANSIENT ISCHAEMIC ATTACK [None]
